FAERS Safety Report 23033634 (Version 1)
Quarter: 2023Q4

REPORT INFORMATION
  Report Type: Spontaneous
  Country: GB (occurrence: GB)
  Receive Date: 20231005
  Receipt Date: 20231005
  Transmission Date: 20240110
  Serious: Yes (Hospitalization)
  Sender: FDA-Public Use
  Company Number: GB-MHRA-ADR 28194996

PATIENT

DRUGS (4)
  1. XCOPRI [Suspect]
     Active Substance: CENOBAMATE
     Indication: Epilepsy
     Dosage: 25 MILLIGRAM, ONCE DAILY
     Route: 048
     Dates: start: 202211, end: 202211
  2. BRIVARACETAM [Concomitant]
     Active Substance: BRIVARACETAM
     Indication: Epilepsy
     Dosage: UNK
     Route: 065
  3. CARBAMAZEPINE [Concomitant]
     Active Substance: CARBAMAZEPINE
     Indication: Epilepsy
     Dosage: UNK
     Route: 065
  4. PREGABALIN [Concomitant]
     Active Substance: PREGABALIN
     Indication: Epilepsy
     Dosage: UNK
     Route: 065

REACTIONS (3)
  - Homicide [Unknown]
  - Psychotic disorder [Unknown]
  - Suicide attempt [Unknown]

NARRATIVE: CASE EVENT DATE: 20221101
